FAERS Safety Report 9476330 (Version 1)
Quarter: 2013Q3

REPORT INFORMATION
  Report Type: Spontaneous
  Country: US (occurrence: US)
  Receive Date: 20130826
  Receipt Date: 20130826
  Transmission Date: 20140515
  Serious: Yes (Other)
  Sender: FDA-Public Use
  Company Number: US-BAYER-2013-102417

PATIENT
  Age: 38 Year
  Sex: Female
  Weight: 90.7 kg

DRUGS (1)
  1. ALEVE TABLET [Suspect]

REACTIONS (4)
  - Eye swelling [None]
  - Urticaria [None]
  - Scab [None]
  - Pruritus [None]
